FAERS Safety Report 16860115 (Version 2)
Quarter: 2020Q3

REPORT INFORMATION
  Report Type: Other
  Country: CA (occurrence: CA)
  Receive Date: 20190927
  Receipt Date: 20200917
  Transmission Date: 20201102
  Serious: Yes (Hospitalization)
  Sender: FDA-Public Use
  Company Number: CA-APOTEX-2019AP022295

PATIENT
  Age: 42 Year
  Sex: Male

DRUGS (8)
  1. DIPHENHYDRAMINE. [Suspect]
     Active Substance: DIPHENHYDRAMINE
     Indication: INTENTIONAL OVERDOSE
     Dosage: 600 MG, IN TOTAL
     Route: 048
  2. LORAZEPAM. [Suspect]
     Active Substance: LORAZEPAM
     Indication: INTENTIONAL OVERDOSE
     Dosage: 8 MG, TOTAL
     Route: 048
  3. XARELTO [Suspect]
     Active Substance: RIVAROXABAN
     Indication: INTENTIONAL OVERDOSE
     Dosage: 1400 MG, TOTAL
     Route: 048
  4. DIPHENHYDRAMINE HYDROCHLORIDE. [Suspect]
     Active Substance: DIPHENHYDRAMINE HYDROCHLORIDE
     Indication: INTENTIONAL OVERDOSE
     Dosage: 600 MILLIGRAM
     Route: 048
  5. ACETAMINOPHEN. [Suspect]
     Active Substance: ACETAMINOPHEN
     Indication: INTENTIONAL OVERDOSE
     Dosage: 24000 MG, TOTAL
     Route: 048
  6. NAPROXEN. [Suspect]
     Active Substance: NAPROXEN
     Indication: INTENTIONAL OVERDOSE
     Dosage: UNK
     Route: 065
  7. CODEINE [Suspect]
     Active Substance: CODEINE
     Indication: INTENTIONAL OVERDOSE
     Dosage: 1200 MG, TOTAL
     Route: 048
  8. NAPROXEN. [Suspect]
     Active Substance: NAPROXEN
     Dosage: UNK
     Route: 048

REACTIONS (5)
  - Prothrombin time prolonged [Recovered/Resolved]
  - Activated partial thromboplastin time prolonged [Recovered/Resolved]
  - Overdose [Recovered/Resolved]
  - Intentional overdose [Recovered/Resolved]
  - International normalised ratio increased [Recovered/Resolved]
